FAERS Safety Report 24354820 (Version 1)
Quarter: 2024Q3

REPORT INFORMATION
  Report Type: Spontaneous
  Country: US (occurrence: US)
  Receive Date: 20240923
  Receipt Date: 20240923
  Transmission Date: 20241017
  Serious: No
  Sender: SANOFI AVENTIS
  Company Number: US-SA-2024SA271750

PATIENT
  Age: 16 Year
  Sex: Male

DRUGS (2)
  1. ALTUVIIIO [Suspect]
     Active Substance: EFANESOCTOCOG ALFA
     Dosage: 1910 IU
     Route: 042
  2. ALTUVIIIO [Suspect]
     Active Substance: EFANESOCTOCOG ALFA
     Dosage: 3820 IU
     Route: 042

REACTIONS (2)
  - Ligament sprain [Unknown]
  - Traumatic haemorrhage [Not Recovered/Not Resolved]

NARRATIVE: CASE EVENT DATE: 20240904
